FAERS Safety Report 15717233 (Version 2)
Quarter: 2019Q1

REPORT INFORMATION
  Report Type: Report from Study
  Country: FR (occurrence: FR)
  Receive Date: 20181213
  Receipt Date: 20190108
  Transmission Date: 20190417
  Serious: Yes (Hospitalization, Other)
  Sender: FDA-Public Use
  Company Number: PHHY2018FR179631

PATIENT
  Age: 55 Year
  Sex: Male
  Weight: 53 kg

DRUGS (4)
  1. TRAMETINIB [Suspect]
     Active Substance: TRAMETINIB
     Indication: LUNG ADENOCARCINOMA STAGE IV
     Dosage: 2 MG, QD
     Route: 048
     Dates: start: 20180801, end: 20181105
  2. TRAMETINIB [Suspect]
     Active Substance: TRAMETINIB
     Dosage: 1 MG, QD
     Route: 048
     Dates: start: 20181205
  3. OXYCODONE [Concomitant]
     Active Substance: OXYCODONE
     Indication: PRODUCT USED FOR UNKNOWN INDICATION
     Dosage: 20 MG, BID
     Route: 065
  4. TAFINLAR [Suspect]
     Active Substance: DABRAFENIB MESYLATE
     Indication: LUNG ADENOCARCINOMA STAGE IV
     Dosage: 150 MG, BID
     Route: 065
     Dates: start: 20180801

REACTIONS (3)
  - Left ventricular dysfunction [Not Recovered/Not Resolved]
  - Ejection fraction decreased [Recovering/Resolving]
  - Ventricular hypokinesia [Unknown]

NARRATIVE: CASE EVENT DATE: 20181103
